FAERS Safety Report 4401357-8 (Version None)
Quarter: 2004Q3

REPORT INFORMATION
  Report Type: 
  Country: None (occurrence: None)
  Receive Date: 20040907
  Receipt Date: 20040323
  Transmission Date: 20050211
  Serious: No
  Sender: FDA-Public Use
  Company Number: US-BRISTOL-MYERS SQUIBB COMPANY-12539938

PATIENT
  Age: 84 Year
  Sex: Male
  Weight: 76 kg

DRUGS (7)
  1. COUMADIN [Suspect]
     Indication: THROMBOSIS
     Dosage: RECEIVED VARYING DOSAGES FOR THE PAST 2 YEARS
     Route: 048
  2. ACCUPRIL [Concomitant]
  3. GLUCOVANCE [Concomitant]
  4. LIPITOR [Concomitant]
  5. COVERA-HS [Concomitant]
  6. OCUVITE [Concomitant]
  7. THERAGRAN-M ADVANCED [Concomitant]

REACTIONS (1)
  - DRUG LEVEL DECREASED [None]
